FAERS Safety Report 17779075 (Version 1)
Quarter: 2020Q2

REPORT INFORMATION
  Report Type: Spontaneous
  Country: GB (occurrence: GB)
  Receive Date: 20200513
  Receipt Date: 20200513
  Transmission Date: 20200714
  Serious: Yes (Other)
  Sender: FDA-Public Use
  Company Number: GB-MYLANLABS-2020M1046218

PATIENT
  Age: 102 Year
  Sex: Female
  Weight: 61 kg

DRUGS (13)
  1. PROCHLORPERAZINE. [Concomitant]
     Active Substance: PROCHLORPERAZINE
     Dosage: 1 DOSAGE FORM, QD (IN THE MORNING)
     Dates: start: 20200122
  2. CASSIA SENNA [Concomitant]
     Active Substance: HERBALS\SENNOSIDES
     Dosage: 10 MILLILITER, PRN (2X5ML SPOON AT NIGHT)
     Dates: start: 20200309, end: 20200406
  3. FUROSEMIDE. [Concomitant]
     Active Substance: FUROSEMIDE
     Dosage: 1 DOSAGE FORM, QD (EACH MORNING)
     Dates: start: 20200122
  4. HYDROCORTISONE. [Concomitant]
     Active Substance: HYDROCORTISONE
     Dosage: 2 DOSAGE FORM, QD (APPLY ABOVE NIPPLE ON RIGHT BREAST)
     Dates: start: 20200124, end: 20200125
  5. BRINZOLAMIDE [Concomitant]
     Active Substance: BRINZOLAMIDE
     Dosage: 6 GTT DROPS, QD
     Route: 047
     Dates: start: 20200123
  6. CETRABEN                           /01690401/ [Concomitant]
     Indication: DRY SKIN
     Dosage: APPLY TO DRY AREAS. CAN BE USED AS SOAP SUBSTITUTE
     Dates: start: 20200302, end: 20200330
  7. FENTANYL. [Concomitant]
     Active Substance: FENTANYL
     Dosage: 1 DOSAGE FORM, Q3D
     Dates: start: 20200324
  8. PARACETAMOL [Concomitant]
     Active Substance: ACETAMINOPHEN
     Dosage: 2 DOSAGE FORM, Q4D (FOUR TIMES A DAY)
     Dates: start: 20200123
  9. BUPRENORPHINE. [Suspect]
     Active Substance: BUPRENORPHINE
     Indication: PRODUCT USED FOR UNKNOWN INDICATION
     Dosage: 1 DOSAGE FORM, QW (20MICROGRAMS/HOUR)
     Dates: start: 20200326
  10. TRAVOPROST. [Concomitant]
     Active Substance: TRAVOPROST
     Dosage: 2 GTT DROPS, QD (AT NIGHT)
     Route: 047
     Dates: start: 20200123
  11. OMEPRAZOLE. [Concomitant]
     Active Substance: OMEPRAZOLE
     Dosage: 1 DOSAGE FORM, QD
     Dates: start: 20200122
  12. FELODIPINE. [Concomitant]
     Active Substance: FELODIPINE
     Dosage: 1 DOSAGE FORM, QD
     Dates: start: 20200122
  13. PIROXICAM. [Concomitant]
     Active Substance: PIROXICAM
     Indication: BACK PAIN
     Dosage: 3 DOSAGE FORM, QD (APPLY)
     Dates: start: 20200406

REACTIONS (1)
  - Hallucination [Recovering/Resolving]

NARRATIVE: CASE EVENT DATE: 20200406
